FAERS Safety Report 6702852-9 (Version None)
Quarter: 2010Q2

REPORT INFORMATION
  Report Type: 
  Country: None (occurrence: None)
  Receive Date: 20100429
  Receipt Date: 20100429
  Transmission Date: 20101027
  Serious: Yes (Other)
  Sender: FDA-Public Use
  Company Number: None

PATIENT
  Age: 40 Year
  Sex: Male
  Weight: 117.9352 kg

DRUGS (1)
  1. LYRICA [Suspect]
     Indication: NEUROPATHY PERIPHERAL
     Dosage: DAILY
     Dates: start: 20100415, end: 20100422

REACTIONS (6)
  - DIZZINESS [None]
  - DYSPNOEA [None]
  - HEADACHE [None]
  - MALAISE [None]
  - NAUSEA [None]
  - SWOLLEN TONGUE [None]
